FAERS Safety Report 4471875-5 (Version None)
Quarter: 2004Q4

REPORT INFORMATION
  Report Type: 
  Country: None (occurrence: None)
  Receive Date: 20041006
  Receipt Date: 20040921
  Transmission Date: 20050328
  Serious: Yes (Other)
  Sender: FDA-Public Use
  Company Number: 2004-0007520

PATIENT
  Age: 1 Day
  Sex: Male
  Weight: 3.118 kg

DRUGS (1)
  1. TENOFOVIR DISOPROXIL FUMARATE (TENOFOVIR DISOPROXIL FUMARATE) [Suspect]
     Indication: HIV INFECTION
     Dosage: 600 MG, 1 IN 1 ONCE, ORAL
     Route: 048
     Dates: start: 20040909, end: 20040909

REACTIONS (7)
  - ALANINE AMINOTRANSFERASE INCREASED [None]
  - APGAR SCORE LOW [None]
  - ASPARTATE AMINOTRANSFERASE INCREASED [None]
  - BLOOD POTASSIUM INCREASED [None]
  - CONGENITAL ANOMALY [None]
  - DRUG EXPOSURE DURING PREGNANCY [None]
  - PREMATURE SEPARATION OF PLACENTA [None]
